FAERS Safety Report 5045729-X (Version None)
Quarter: 2006Q2

REPORT INFORMATION
  Report Type: 
  Country: None (occurrence: None)
  Receive Date: 20060601
  Receipt Date: 20060309
  Transmission Date: 20061013
  Serious: No
  Sender: FDA-Public Use
  Company Number: 2006-BP-00052BP

PATIENT
  Age: 75 Year
  Sex: Female
  Weight: 49 kg

DRUGS (15)
  1. SPIRIVA [Suspect]
     Indication: CHRONIC OBSTRUCTIVE PULMONARY DISEASE
     Dosage: 18 MCG (18 MCG,1 IN 1 D),IH
     Dates: start: 20051015
  2. SPIRIVA [Suspect]
     Indication: EMPHYSEMA
     Dosage: 18 MCG (18 MCG,1 IN 1 D),IH
     Dates: start: 20051015
  3. SPIRIVA [Suspect]
  4. LISINOPRIL [Concomitant]
  5. ATENOLOL [Concomitant]
  6. FUROSEMIDE [Concomitant]
  7. PROTONIX [Concomitant]
  8. ISOSORBIDE (ISOSORBIDE) [Concomitant]
  9. DILTIAZEM [Concomitant]
  10. LIPITOR [Concomitant]
  11. ACCOLATE [Concomitant]
  12. PREDNISONE TAB [Concomitant]
  13. NITROSTAT [Concomitant]
  14. ALPRAZOLAM [Concomitant]
  15. ADVAIR (SERETIDE /01420901/) [Concomitant]

REACTIONS (1)
  - DYSPNOEA [None]
